FAERS Safety Report 6970090-0 (Version None)
Quarter: 2010Q3

REPORT INFORMATION
  Report Type: 
  Country: None (occurrence: None)
  Receive Date: 20100823
  Receipt Date: 20100528
  Transmission Date: 20110219
  Serious: No
  Sender: FDA-Public Use
  Company Number: 009166

PATIENT
  Sex: Male
  Weight: 52.2 kg

DRUGS (4)
  1. CIMZIA [Suspect]
     Indication: CROHN'S DISEASE
     Dosage: SUBCUTANEOUS
     Route: 058
     Dates: start: 20080101
  2. ZANTAC [Concomitant]
  3. KLONOPIN [Concomitant]
  4. SCOPOLAMINE [Concomitant]

REACTIONS (1)
  - ALOPECIA [None]
